FAERS Safety Report 5723576-0 (Version None)
Quarter: 2008Q2

REPORT INFORMATION
  Report Type: 
  Country: None (occurrence: None)
  Receive Date: 20080430
  Receipt Date: 20080428
  Transmission Date: 20081010
  Serious: Yes (Other)
  Sender: FDA-Public Use
  Company Number: B0518380A

PATIENT
  Age: 82 Year
  Sex: Male

DRUGS (1)
  1. ZOVIRAX [Suspect]
     Indication: HERPES ZOSTER
     Dosage: 800MG FIVE TIMES PER DAY
     Route: 048
     Dates: start: 20080424

REACTIONS (4)
  - CONFUSIONAL STATE [None]
  - DRUG ADMINISTRATION ERROR [None]
  - HALLUCINATION [None]
  - OVERDOSE [None]
